FAERS Safety Report 10146939 (Version 1)
Quarter: 2014Q2

REPORT INFORMATION
  Report Type: Spontaneous
  Country: US (occurrence: None)
  Receive Date: 20140430
  Receipt Date: 20140430
  Transmission Date: 20141212
  Serious: No
  Sender: FDA-Public Use
  Company Number: None

PATIENT
  Age: 93 Year
  Sex: Male

DRUGS (18)
  1. FORTEO [Suspect]
     Indication: OSTEOPOROSIS
     Dosage: 20 MCG, DAILY, SUB Q
     Route: 058
     Dates: start: 20140116
  2. FORTEO [Suspect]
     Indication: PATHOLOGICAL FRACTURE
     Dosage: 20 MCG, DAILY, SUB Q
     Route: 058
     Dates: start: 20140116
  3. ALLOPURINOL [Concomitant]
  4. ASPIRIN [Concomitant]
  5. CYMBICORT [Concomitant]
  6. CENTRUM SILVER [Concomitant]
  7. WARFARIN [Suspect]
  8. LASIX [Concomitant]
  9. METOPROLOL [Concomitant]
  10. NORVASC [Concomitant]
  11. PRILOSEC [Concomitant]
  12. FISH OIL [Concomitant]
  13. SIMVASTATIN [Concomitant]
  14. TRAMADOL [Concomitant]
  15. OXYBUTYNIN [Concomitant]
  16. DOXASOZIN [Concomitant]
  17. CLINDAMYCIN [Concomitant]
  18. XANAX [Concomitant]

REACTIONS (1)
  - Aneurysm [None]
